FAERS Safety Report 8196694-8 (Version None)
Quarter: 2012Q1

REPORT INFORMATION
  Report Type: 
  Country: None (occurrence: None)
  Receive Date: 20120309
  Receipt Date: 20120301
  Transmission Date: 20120608
  Serious: Yes (Hospitalization)
  Sender: FDA-Public Use
  Company Number: US-BAYER-200930739NA

PATIENT
  Age: 35 Year
  Sex: Female
  Weight: 58.957 kg

DRUGS (8)
  1. VICODIN [Concomitant]
     Indication: PAIN
     Dosage: UNK
     Dates: start: 20060701, end: 20060701
  2. CYCLOBENZAPRINE [Concomitant]
     Indication: MUSCLE SPASMS
     Dosage: UNK
     Dates: start: 20030101, end: 20080101
  3. PROMETHAZINE [Concomitant]
     Indication: NAUSEA
     Dosage: UNK
     Dates: start: 20040101, end: 20070101
  4. AMBIEN [Concomitant]
     Indication: SLEEP DISORDER
     Dosage: UNK
     Dates: start: 20060101, end: 20060101
  5. CLONAZEPAM [Concomitant]
     Indication: ANXIETY
     Dosage: UNK
     Dates: start: 20030101, end: 20080101
  6. PAXIL [Concomitant]
     Indication: DEPRESSION
     Dosage: UNK
     Dates: start: 20040101, end: 20080101
  7. PRILOSEC [Concomitant]
     Indication: GASTROOESOPHAGEAL REFLUX DISEASE
     Dosage: UNK
     Dates: start: 20040101, end: 20080101
  8. YAZ [Suspect]
     Indication: PRODUCT USED FOR UNKNOWN INDICATION
     Dosage: UNK
     Dates: start: 20060601, end: 20060801

REACTIONS (5)
  - CHEST PAIN [None]
  - DYSPNOEA [None]
  - PSYCHOLOGICAL TRAUMA [None]
  - FEAR [None]
  - PULMONARY EMBOLISM [None]
